FAERS Safety Report 6906988-9 (Version None)
Quarter: 2010Q3

REPORT INFORMATION
  Report Type: 
  Country: None (occurrence: None)
  Receive Date: 20100804
  Receipt Date: 20071204
  Transmission Date: 20110219
  Serious: Yes (Other)
  Sender: FDA-Public Use
  Company Number: US-PFIZER INC-2007095499

PATIENT
  Sex: Female

DRUGS (1)
  1. NARDIL [Suspect]
     Indication: MAJOR DEPRESSION
     Dates: end: 20070201

REACTIONS (3)
  - DRUG INEFFECTIVE [None]
  - HEADACHE [None]
  - NIGHTMARE [None]
